FAERS Safety Report 13190332 (Version 1)
Quarter: 2017Q1

REPORT INFORMATION
  Report Type: Spontaneous
  Country: JP (occurrence: JP)
  Receive Date: 20170206
  Receipt Date: 20170206
  Transmission Date: 20170428
  Serious: Yes (Hospitalization)
  Sender: FDA-Public Use
  Company Number: JP-MALLINCKRODT-T201505164

PATIENT
  Age: 63 Year
  Sex: Male
  Weight: 65 kg

DRUGS (31)
  1. POLARAMINE [Concomitant]
     Active Substance: DEXCHLORPHENIRAMINE MALEATE
     Dosage: 5 MG
     Route: 051
     Dates: start: 20151102, end: 20151102
  2. ISOTONIC SODIUM CHLORIDE SOLUTION [Concomitant]
     Active Substance: SODIUM CHLORIDE
     Dosage: 200 MG
     Route: 051
     Dates: start: 20151211, end: 20151217
  3. 5-FU [Concomitant]
     Active Substance: FLUOROURACIL
     Dosage: 700 MG
     Route: 051
     Dates: start: 20151102, end: 20151102
  4. 5-FU [Concomitant]
     Active Substance: FLUOROURACIL
     Dosage: 700 MG
     Route: 051
     Dates: start: 20151117, end: 20151117
  5. 5-FU [Concomitant]
     Active Substance: FLUOROURACIL
     Dosage: 2100 MG
     Route: 051
     Dates: start: 20151117, end: 20151118
  6. METHADONE [Suspect]
     Active Substance: METHADONE HYDROCHLORIDE
     Indication: CANCER PAIN
     Dosage: 10 MG (30 MG DAILY DOSE)
     Route: 048
     Dates: start: 20150914, end: 20150929
  7. LYRICA [Concomitant]
     Active Substance: PREGABALIN
     Indication: ANALGESIC THERAPY
     Dosage: 150 MG
     Route: 048
     Dates: end: 20150918
  8. NEXIUM [Concomitant]
     Active Substance: ESOMEPRAZOLE MAGNESIUM
     Dosage: 20 MG
     Route: 048
     Dates: start: 20151110
  9. ALOXI [Concomitant]
     Active Substance: PALONOSETRON HYDROCHLORIDE
     Dosage: 0.75 MG
     Route: 051
     Dates: start: 20151117, end: 20151117
  10. ISOVORIN [Concomitant]
     Active Substance: LEUCOVORIN CALCIUM
     Dosage: 350 MG
     Route: 051
     Dates: start: 20151117, end: 20151117
  11. OXYNORM [Concomitant]
     Active Substance: OXYCODONE HYDROCHLORIDE
     Indication: ANALGESIC THERAPY
     Dosage: 10 MG, PRN
     Route: 048
     Dates: start: 20150913
  12. LEVOFLOXACIN. [Concomitant]
     Active Substance: LEVOFLOXACIN
     Dosage: 500 MG
     Route: 048
     Dates: start: 20150918, end: 20150925
  13. LINOLOSAL [Concomitant]
     Active Substance: BETAMETHASONE SODIUM PHOSPHATE
     Indication: ANALGESIC THERAPY
     Dosage: 2 MG
     Route: 051
     Dates: start: 20151111, end: 20151111
  14. ISOVORIN [Concomitant]
     Active Substance: LEUCOVORIN CALCIUM
     Dosage: 350 MG
     Route: 051
     Dates: start: 20151102, end: 20151102
  15. ELPLAT [Concomitant]
     Active Substance: OXALIPLATIN
     Dosage: 140 MG
     Route: 051
     Dates: start: 20151117, end: 20151117
  16. ISOTONIC SODIUM CHLORIDE SOLUTION [Concomitant]
     Active Substance: SODIUM CHLORIDE
     Dosage: 65 MG
     Route: 051
     Dates: start: 20151102, end: 20151102
  17. ISOTONIC SODIUM CHLORIDE SOLUTION [Concomitant]
     Active Substance: SODIUM CHLORIDE
     Dosage: 65 MG
     Route: 051
     Dates: start: 20151117, end: 20151117
  18. HEPARIN SODIUM. [Concomitant]
     Active Substance: HEPARIN SODIUM
     Dosage: 2500 IU
     Route: 051
     Dates: start: 20151102, end: 20151103
  19. METHADONE [Suspect]
     Active Substance: METHADONE HYDROCHLORIDE
     Dosage: 35 MG DAILY DOSE
     Route: 048
     Dates: start: 20150929
  20. LONSURF [Concomitant]
     Active Substance: TIPIRACIL HYDROCHLORIDE\TRIFLURIDINE
     Dosage: 120 MG
     Route: 048
     Dates: end: 20150916
  21. GLUCOSE [Concomitant]
     Active Substance: DEXTROSE
     Dosage: 1000 ML
     Route: 051
     Dates: start: 20151102, end: 20151102
  22. DEXART [Concomitant]
     Active Substance: DEXAMETHASONE SODIUM PHOSPHATE
     Dosage: 6.6 MG
     Route: 051
     Dates: start: 20151117, end: 20151117
  23. ALOXI [Concomitant]
     Active Substance: PALONOSETRON HYDROCHLORIDE
     Dosage: 0.75 MG
     Route: 051
     Dates: start: 20151102, end: 20151102
  24. HEPARIN SODIUM. [Concomitant]
     Active Substance: HEPARIN SODIUM
     Dosage: 2500 IU
     Route: 051
     Dates: start: 20151117, end: 20151118
  25. LIDOCAINE. [Concomitant]
     Active Substance: LIDOCAINE
     Indication: ANALGESIC THERAPY
     Dosage: 10 ML
     Route: 051
     Dates: start: 20151111, end: 20151111
  26. LOXOPROFEN SODIUM [Concomitant]
     Active Substance: LOXOPROFEN SODIUM
     Indication: ANALGESIC THERAPY
     Dosage: 180 MG
     Route: 048
     Dates: start: 20151027
  27. DEXART [Concomitant]
     Active Substance: DEXAMETHASONE SODIUM PHOSPHATE
     Dosage: 6.6 MG
     Route: 051
     Dates: start: 20151102, end: 20151102
  28. GLUCOSE [Concomitant]
     Active Substance: DEXTROSE
     Dosage: 1000 ML
     Route: 051
     Dates: start: 20151117, end: 20151117
  29. POLARAMINE [Concomitant]
     Active Substance: DEXCHLORPHENIRAMINE MALEATE
     Dosage: 5 MG
     Route: 051
     Dates: start: 20151117, end: 20151117
  30. ELPLAT [Concomitant]
     Active Substance: OXALIPLATIN
     Dosage: 140 MG
     Route: 051
     Dates: start: 20151102, end: 20151102
  31. 5-FU [Concomitant]
     Active Substance: FLUOROURACIL
     Dosage: 2100 MG
     Route: 051
     Dates: start: 20151102, end: 20151103

REACTIONS (8)
  - Pneumonia [Recovered/Resolved]
  - Dehydration [Recovered/Resolved]
  - Pyrexia [Recovered/Resolved]
  - Skin erosion [Not Recovered/Not Resolved]
  - Nausea [Recovering/Resolving]
  - Constipation [Recovering/Resolving]
  - Somnolence [Recovered/Resolved]
  - Neutrophil count decreased [Recovered/Resolved]

NARRATIVE: CASE EVENT DATE: 20150915
